FAERS Safety Report 17910170 (Version 1)
Quarter: 2020Q2

REPORT INFORMATION
  Report Type: Spontaneous
  Country: IL (occurrence: IL)
  Receive Date: 20200618
  Receipt Date: 20200618
  Transmission Date: 20200714
  Serious: Yes (Hospitalization, Other)
  Sender: FDA-Public Use
  Company Number: IL-009507513-2006ISR005074

PATIENT
  Age: 67 Year
  Sex: Male

DRUGS (3)
  1. KEYTRUDA [Suspect]
     Active Substance: PEMBROLIZUMAB
     Indication: LUNG ADENOCARCINOMA STAGE IV
     Dosage: MONOTHERAPY
     Dates: start: 20180822
  2. KEYTRUDA [Suspect]
     Active Substance: PEMBROLIZUMAB
     Dosage: MONOTHERAPY (SECOND TREATMENT)
     Dates: start: 2018
  3. KEYTRUDA [Suspect]
     Active Substance: PEMBROLIZUMAB
     Dosage: MONOTHERAPY (THIRD TREATMENT)
     Dates: start: 20181022

REACTIONS (3)
  - Malignant neoplasm progression [Recovering/Resolving]
  - Therapeutic response decreased [Recovering/Resolving]
  - Anal infection [Recovering/Resolving]

NARRATIVE: CASE EVENT DATE: 201809
